FAERS Safety Report 12060504 (Version 1)
Quarter: 2016Q1

REPORT INFORMATION
  Report Type: Report from Study
  Country: JP (occurrence: JP)
  Receive Date: 20160210
  Receipt Date: 20160210
  Transmission Date: 20160526
  Serious: Yes (Death, Hospitalization)
  Sender: FDA-Public Use
  Company Number: JP-009507513-1602JPN004849

PATIENT
  Age: 49 Year
  Sex: Female
  Weight: 62.9 kg

DRUGS (8)
  1. TEMOZOLOMIDE. [Suspect]
     Active Substance: TEMOZOLOMIDE
     Dosage: 200 MG/M2, QD
     Route: 041
     Dates: start: 20130916, end: 20130920
  2. TEMOZOLOMIDE. [Suspect]
     Active Substance: TEMOZOLOMIDE
     Dosage: 200 MG/M2, QD
     Route: 041
     Dates: start: 20130722, end: 20130726
  3. TEMOZOLOMIDE. [Suspect]
     Active Substance: TEMOZOLOMIDE
     Dosage: 200 MG/M2, QD
     Route: 041
     Dates: start: 20130819, end: 20130823
  4. TEMOZOLOMIDE. [Suspect]
     Active Substance: TEMOZOLOMIDE
     Dosage: 200 MG/M2, QD
     Route: 041
     Dates: start: 20131014, end: 20131018
  5. TEMOZOLOMIDE. [Suspect]
     Active Substance: TEMOZOLOMIDE
     Indication: GLIOBLASTOMA MULTIFORME
     Dosage: 200 MG/M2, QD
     Route: 041
     Dates: start: 20130624, end: 20130628
  6. TEMODAL [Suspect]
     Active Substance: TEMOZOLOMIDE
     Indication: GLIOBLASTOMA MULTIFORME
     Dosage: DAILY DOSE UNKNOWN
     Route: 048
     Dates: start: 20071025, end: 20090825
  7. TEMODAL [Suspect]
     Active Substance: TEMOZOLOMIDE
     Dosage: DAILY DOSE UNKNOWN
     Route: 048
     Dates: start: 20110309, end: 20121229
  8. AVASTIN [Suspect]
     Active Substance: BEVACIZUMAB
     Indication: BRAIN NEOPLASM
     Dosage: DAILY DOSAGE UNKNOWN
     Route: 041
     Dates: start: 20130826, end: 20131030

REACTIONS (6)
  - Hemiplegia [Recovering/Resolving]
  - Intestinal perforation [Recovering/Resolving]
  - Disease progression [Fatal]
  - Abdominal abscess [Recovering/Resolving]
  - Injection site pain [Recovered/Resolved]
  - Altered state of consciousness [Recovering/Resolving]

NARRATIVE: CASE EVENT DATE: 20130624
